FAERS Safety Report 16629004 (Version 2)
Quarter: 2019Q4

REPORT INFORMATION
  Report Type: Spontaneous
  Country: US (occurrence: US)
  Receive Date: 20190725
  Receipt Date: 20191106
  Transmission Date: 20200122
  Serious: Yes (Other)
  Sender: FDA-Public Use
  Company Number: US-009507513-1907USA012593

PATIENT
  Sex: Female

DRUGS (1)
  1. PEGINTRON [Suspect]
     Active Substance: PEGINTERFERON ALFA-2B
     Indication: ANOGENITAL WARTS
     Dosage: 100 MICROGRAM, WEEKLY (QW)
     Route: 058
     Dates: start: 20181123, end: 201904

REACTIONS (1)
  - Neoplasm malignant [Unknown]
